FAERS Safety Report 8896267 (Version 1)
Quarter: 2012Q4

REPORT INFORMATION
  Report Type: Spontaneous
  Country: US (occurrence: None)
  Receive Date: 20121106
  Receipt Date: 20121106
  Transmission Date: 20130627
  Serious: Yes (Other)
  Sender: FDA-Public Use
  Company Number: None

PATIENT
  Age: 29 Year
  Sex: Female
  Weight: 59.88 kg

DRUGS (1)
  1. ZALEPLON [Suspect]
     Indication: INSOMNIA
     Dosage: 10mg 1 po
     Route: 048
     Dates: start: 20120728, end: 20121002

REACTIONS (9)
  - Mood altered [None]
  - Depression [None]
  - Aggression [None]
  - Impaired work ability [None]
  - Premenstrual dysphoric disorder [None]
  - Premenstrual syndrome [None]
  - Feeling abnormal [None]
  - Feeling abnormal [None]
  - Hormone level abnormal [None]
